FAERS Safety Report 14889601 (Version 1)
Quarter: 2018Q2

REPORT INFORMATION
  Report Type: Report from Study
  Country: CN (occurrence: CN)
  Receive Date: 20180514
  Receipt Date: 20180514
  Transmission Date: 20180711
  Serious: Yes (Other)
  Sender: FDA-Public Use
  Company Number: CN-ROCHE-2122559

PATIENT

DRUGS (2)
  1. GEMCITABINE [Suspect]
     Active Substance: GEMCITABINE\GEMCITABINE HYDROCHLORIDE
     Indication: OVARIAN CANCER RECURRENT
     Dosage: ON DAY 1, 8 AND 21 DAY OF A 21 DAYS CYCLE
     Route: 041
  2. BEVACIZUMAB. [Suspect]
     Active Substance: BEVACIZUMAB
     Indication: OVARIAN CANCER RECURRENT
     Dosage: ADDED INTO 100 ML OF NORMAL SALINE; ADMINISTERED 1 HOUR BEFORE OR AFTER THE GEMCITABINE
     Route: 041

REACTIONS (8)
  - Skin toxicity [Unknown]
  - Renal impairment [Unknown]
  - Alopecia [Unknown]
  - Haematotoxicity [Unknown]
  - Gastrointestinal toxicity [Unknown]
  - Mucosal toxicity [Unknown]
  - Neurotoxicity [Unknown]
  - Hepatic function abnormal [Unknown]
